FAERS Safety Report 17539096 (Version 1)
Quarter: 2020Q1

REPORT INFORMATION
  Report Type: Spontaneous
  Country: US (occurrence: US)
  Receive Date: 20200313
  Receipt Date: 20200313
  Transmission Date: 20200409
  Serious: Yes (Hospitalization)
  Sender: FDA-Public Use
  Company Number: None

PATIENT
  Age: 34 Year
  Sex: Female
  Weight: 50.8 kg

DRUGS (4)
  1. COQ10-TAB [Concomitant]
  2. LEXAPRO PO 30MG [Concomitant]
  3. VALIUM 4MG [Concomitant]
  4. QVAR REDIHALER [Suspect]
     Active Substance: BECLOMETHASONE DIPROPIONATE
     Indication: ASTHMA
     Dosage: 1 PUFF
     Route: 055

REACTIONS (4)
  - Cough [None]
  - Device defective [None]
  - Asthma [None]
  - Device leakage [None]

NARRATIVE: CASE EVENT DATE: 20200313
